FAERS Safety Report 8887932 (Version 1)
Quarter: 2012Q4

REPORT INFORMATION
  Report Type: 
  Country: US (occurrence: US)
  Receive Date: 20121106
  Receipt Date: 20121106
  Transmission Date: 20130627
  Serious: No
  Sender: FDA-Public Use
  Company Number: US-BIOGENIDEC-2012BI048262

PATIENT
  Sex: Female

DRUGS (1)
  1. TYSABRI [Suspect]
     Indication: MULTIPLE SCLEROSIS
     Route: 042
     Dates: start: 20100608

REACTIONS (4)
  - Musculoskeletal stiffness [Recovered/Resolved]
  - Bradyphrenia [Not Recovered/Not Resolved]
  - Laryngospasm [Recovered/Resolved]
  - Feeling jittery [Recovered/Resolved]
